FAERS Safety Report 7323343-0 (Version None)
Quarter: 2011Q1

REPORT INFORMATION
  Report Type: 
  Country: None (occurrence: None)
  Receive Date: 20110301
  Receipt Date: 20110223
  Transmission Date: 20110831
  Serious: Yes (Other)
  Sender: FDA-Public Use
  Company Number: JP-PFIZER INC-2011037821

PATIENT
  Age: 36 Year
  Sex: Female

DRUGS (2)
  1. XALATAN [Concomitant]
     Route: 047
  2. CABERGOLINE [Suspect]
     Indication: LACTATION PUERPERAL INCREASED
     Dosage: 1 MG, 1X/DAY
     Route: 048
     Dates: start: 20110221

REACTIONS (4)
  - BLOOD PRESSURE INCREASED [None]
  - NAUSEA [None]
  - DIZZINESS [None]
  - HEADACHE [None]
